FAERS Safety Report 4363702-1 (Version None)
Quarter: 2004Q2

REPORT INFORMATION
  Report Type: 
  Country: None (occurrence: None)
  Receive Date: 20040524
  Receipt Date: 20031210
  Transmission Date: 20050107
  Serious: Yes (Other)
  Sender: FDA-Public Use
  Company Number: AU-ROCHE-353766

PATIENT
  Age: 52 Year
  Sex: Male
  Weight: 66 kg

DRUGS (3)
  1. RIBAVIRIN [Suspect]
     Route: 048
     Dates: start: 20030417, end: 20031219
  2. RIBAVIRIN [Suspect]
     Route: 048
     Dates: start: 20040128
  3. PEG-INTERFERON ALFA 2A (RO 25-8310) [Suspect]
     Dosage: FORM WAS REPORTED AS PREFILLED SYRINGE.
     Route: 058
     Dates: start: 20030416

REACTIONS (4)
  - ABORTION INDUCED [None]
  - INTRA-UTERINE DEATH [None]
  - PREGNANCY [None]
  - TRANSMISSION OF DRUG VIA SEMEN [None]
